FAERS Safety Report 15349317 (Version 3)
Quarter: 2019Q1

REPORT INFORMATION
  Report Type: Report from Study
  Country: CA (occurrence: CA)
  Receive Date: 20180904
  Receipt Date: 20190124
  Transmission Date: 20190417
  Serious: Yes (Death, Other)
  Sender: FDA-Public Use
  Company Number: CA-BRISTOL-MYERS SQUIBB COMPANY-BMS-2018-054741

PATIENT
  Age: 39 Year
  Sex: Female

DRUGS (3)
  1. NIVOLUMAB [Suspect]
     Active Substance: NIVOLUMAB
     Indication: CHOLANGIOCARCINOMA
     Dosage: 160 MG, Q2WK
     Route: 042
     Dates: start: 20180309
  2. LEVOTHYROXINE. [Concomitant]
     Active Substance: LEVOTHYROXINE
     Indication: HYPOTHYROIDISM
     Dosage: 100 ?G, QD
     Route: 048
  3. BUDESONIDE. [Concomitant]
     Active Substance: BUDESONIDE
     Indication: COLITIS ULCERATIVE
     Dosage: 9 ?G, QD
     Route: 048
     Dates: start: 20180709

REACTIONS (5)
  - Death [Fatal]
  - Diarrhoea [Unknown]
  - Product use in unapproved indication [Unknown]
  - Decreased appetite [Unknown]
  - Haematochezia [Unknown]

NARRATIVE: CASE EVENT DATE: 20180612
